FAERS Safety Report 9716982 (Version 4)
Quarter: 2014Q1

REPORT INFORMATION
  Report Type: Report from Study
  Country: CA (occurrence: CA)
  Receive Date: 20131127
  Receipt Date: 20140303
  Transmission Date: 20141002
  Serious: Yes (Other)
  Sender: FDA-Public Use
  Company Number: CA-ROCHE-1301207

PATIENT
  Sex: Female
  Weight: 72.6 kg

DRUGS (11)
  1. RITUXAN [Suspect]
     Indication: GRANULOMATOSIS WITH POLYANGIITIS
     Dosage: WEEK 1
     Route: 042
     Dates: start: 20120119
  2. RITUXAN [Suspect]
     Dosage: WEEKS 2, 3 AND 4
     Route: 042
     Dates: start: 20120126
  3. RITUXAN [Suspect]
     Route: 042
     Dates: start: 20120815, end: 20120815
  4. DIPHENHYDRAMINE HCL [Concomitant]
     Indication: PREMEDICATION
     Route: 048
     Dates: start: 20120119
  5. ACETAMINOPHEN [Concomitant]
     Indication: PREMEDICATION
     Route: 048
     Dates: start: 20120119
  6. ACETAMINOPHEN [Concomitant]
     Route: 048
     Dates: start: 20120815
  7. METHYLPREDNISOLONE [Concomitant]
     Indication: PREMEDICATION
     Route: 042
     Dates: start: 20120119
  8. VITAMIN E [Concomitant]
  9. VITAMIN C [Concomitant]
  10. SELENIUM [Concomitant]
  11. ALESION [Concomitant]

REACTIONS (4)
  - B-lymphocyte count decreased [Unknown]
  - Maternal exposure during pregnancy [Unknown]
  - Sinus disorder [Recovering/Resolving]
  - Arthralgia [Recovering/Resolving]
